FAERS Safety Report 4582220-9 (Version None)
Quarter: 2005Q1

REPORT INFORMATION
  Report Type: 
  Country: None (occurrence: None)
  Receive Date: 20050214
  Receipt Date: 20050127
  Transmission Date: 20050727
  Serious: Yes (Hospitalization)
  Sender: FDA-Public Use
  Company Number: TRP_0051_2005

PATIENT
  Age: 42 Year
  Sex: Female

DRUGS (3)
  1. RIBASPHERE [Suspect]
     Indication: HEPATITIS C
     Dosage: DF  PO
     Route: 048
     Dates: start: 20040611
  2. PEG-INTRON [Suspect]
     Dosage: DF    SC
     Route: 058
     Dates: start: 20040611
  3. LEVOXYL [Concomitant]

REACTIONS (6)
  - ABDOMINAL INFECTION [None]
  - CHOLELITHIASIS [None]
  - FATIGUE [None]
  - HYSTERECTOMY [None]
  - INCISION SITE COMPLICATION [None]
  - POSTOPERATIVE INFECTION [None]
